FAERS Safety Report 10765273 (Version 2)
Quarter: 2015Q1

REPORT INFORMATION
  Report Type: Report from Study
  Country: CA (occurrence: CA)
  Receive Date: 20150205
  Receipt Date: 20150206
  Transmission Date: 20150721
  Serious: Yes (Other)
  Sender: FDA-Public Use
  Company Number: CA-JNJFOC-20150120864

PATIENT
  Age: 29 Year
  Sex: Female
  Weight: 56.7 kg

DRUGS (2)
  1. REMICADE [Suspect]
     Active Substance: INFLIXIMAB
     Indication: CROHN^S DISEASE
     Route: 042
  2. REMICADE [Suspect]
     Active Substance: INFLIXIMAB
     Indication: CROHN^S DISEASE
     Route: 042
     Dates: start: 201412

REACTIONS (4)
  - Fistula [Recovered/Resolved]
  - Crohn^s disease [Unknown]
  - Arthralgia [Unknown]
  - Drug level decreased [Unknown]

NARRATIVE: CASE EVENT DATE: 201408
